FAERS Safety Report 7241316-3 (Version None)
Quarter: 2011Q1

REPORT INFORMATION
  Report Type: 
  Country: None (occurrence: None)
  Receive Date: 20110124
  Receipt Date: 20110119
  Transmission Date: 20110831
  Serious: Yes (Other)
  Sender: FDA-Public Use
  Company Number: FR-ROCHE-752308

PATIENT
  Sex: Female

DRUGS (7)
  1. FLUOROURACIL [Suspect]
     Dosage: DRUG REPORTED AS FLUOROURACILE
     Route: 042
     Dates: start: 20100831, end: 20100902
  2. TAXOL [Concomitant]
     Dates: start: 20100831
  3. TAXOTERE [Suspect]
     Dosage: FREQUENCY: CYCLIC
     Route: 042
     Dates: start: 20100804, end: 20100804
  4. TAXOTERE [Suspect]
     Dosage: SECOND CYCLE: WITH DECREASED DOSAGE OF 25 %
     Route: 042
     Dates: start: 20100831, end: 20100831
  5. AVASTIN [Suspect]
     Route: 042
     Dates: start: 20100831, end: 20100831
  6. AVASTIN [Suspect]
     Route: 042
  7. FLUOROURACIL [Suspect]
     Route: 042

REACTIONS (3)
  - STOMATITIS [None]
  - PRURITUS [None]
  - ALOPECIA [None]
